FAERS Safety Report 7239607-5 (Version None)
Quarter: 2011Q1

REPORT INFORMATION
  Report Type: 
  Country: None (occurrence: None)
  Receive Date: 20110122
  Receipt Date: 20110118
  Transmission Date: 20110831
  Serious: No
  Sender: FDA-Public Use
  Company Number: US-B.I. PHARMACEUTICALS,INC./RIDGEFIELD-2011-BP-01400BP

PATIENT
  Sex: Female

DRUGS (2)
  1. PRADAXA [Suspect]
     Dates: start: 20110112
  2. SIMVASTATIN [Concomitant]
     Dosage: 10 MG

REACTIONS (1)
  - CHEST PAIN [None]
